FAERS Safety Report 4825959-X (Version None)
Quarter: 2005Q4

REPORT INFORMATION
  Report Type: 
  Country: None (occurrence: None)
  Receive Date: 20051014
  Receipt Date: 20050706
  Transmission Date: 20060501
  Serious: No
  Sender: FDA-Public Use
  Company Number: 2005SP001771

PATIENT
  Age: 35 Year
  Sex: Female
  Weight: 105.6881 kg

DRUGS (2)
  1. LUNESTA [Suspect]
     Indication: INSOMNIA
     Dosage: 3 MG HS ORAL
     Route: 048
     Dates: start: 20050705
  2. PROZAC [Concomitant]

REACTIONS (1)
  - DYSGEUSIA [None]
